FAERS Safety Report 22610771 (Version 1)
Quarter: 2023Q2

REPORT INFORMATION
  Report Type: Spontaneous
  Country: US (occurrence: US)
  Receive Date: 20230616
  Receipt Date: 20230616
  Transmission Date: 20230722
  Serious: Yes (Other)
  Sender: FDA-Public Use
  Company Number: US-AMGEN-USASP2023102351

PATIENT
  Sex: Female

DRUGS (3)
  1. REPATHA [Suspect]
     Active Substance: EVOLOCUMAB
     Indication: Low density lipoprotein abnormal
     Dosage: UNK
     Route: 065
  2. BENADRYL [Concomitant]
     Active Substance: DIPHENHYDRAMINE HYDROCHLORIDE
     Route: 065
  3. KETAMINE [Concomitant]
     Active Substance: KETAMINE
     Route: 050

REACTIONS (4)
  - Diabetes mellitus [Unknown]
  - Chest pain [Unknown]
  - COVID-19 [Unknown]
  - Dizziness [Unknown]

NARRATIVE: CASE EVENT DATE: 20221201
